FAERS Safety Report 22219580 (Version 16)
Quarter: 2023Q4

REPORT INFORMATION
  Report Type: Report from Study
  Country: KR (occurrence: KR)
  Receive Date: 20230417
  Receipt Date: 20231102
  Transmission Date: 20240110
  Serious: Yes (Death, Other)
  Sender: FDA-Public Use
  Company Number: KR-AMGEN-KORCT2023064073

PATIENT
  Age: 16 Year
  Sex: Male

DRUGS (46)
  1. CARFILZOMIB [Suspect]
     Active Substance: CARFILZOMIB
     Indication: Acute lymphocytic leukaemia
     Dosage: 68.9 MILLIGRAM
     Route: 042
     Dates: start: 20230328
  2. CEFDITOREN PIVOXIL [Concomitant]
     Active Substance: CEFDITOREN PIVOXIL
     Dosage: 100 MILLIGRAM
     Route: 048
     Dates: start: 20230117, end: 20230329
  3. URSODIOL [Concomitant]
     Active Substance: URSODIOL
     Dosage: 200 MILLIGRAM
     Route: 048
     Dates: start: 20230227, end: 20230530
  4. ALLOPURINOL [Concomitant]
     Active Substance: ALLOPURINOL
     Dosage: 150 MILLIGRAM
     Route: 048
     Dates: start: 20230324, end: 20230329
  5. Citopcin [Concomitant]
     Dosage: 280 MILLIGRAM
     Route: 042
     Dates: start: 20230325, end: 20230403
  6. Zoylex [Concomitant]
     Dosage: 200 MILLIGRAM
     Route: 042
     Dates: start: 20230325, end: 20230329
  7. DEFEROXAMINE MESYLATE [Concomitant]
     Active Substance: DEFEROXAMINE MESYLATE
     Dosage: 4500 MILLIGRAM
     Route: 042
     Dates: start: 20230325, end: 20230327
  8. PROPACETAMOL HYDROCHLORIDE [Concomitant]
     Active Substance: PROPACETAMOL HYDROCHLORIDE
     Dosage: 0.7 GRAM
     Route: 042
     Dates: start: 20230503, end: 20230528
  9. CANCIDAS [Concomitant]
     Active Substance: CASPOFUNGIN ACETATE
     Dosage: 70 MILLIGRAM
     Route: 042
     Dates: start: 20230327, end: 20230510
  10. CHLORPHENIRAMINE MALEATE [Concomitant]
     Active Substance: CHLORPHENIRAMINE MALEATE
     Dosage: 2 MILLILITER
     Route: 042
     Dates: start: 20230327, end: 20230605
  11. Effexin [Concomitant]
     Dosage: 1 UNK
     Route: 047
     Dates: start: 20230327, end: 20230327
  12. GASTER [Concomitant]
     Active Substance: FAMOTIDINE
     Dosage: 18 MILLIGRAM
     Route: 042
     Dates: start: 20230328, end: 20230605
  13. CARDIOXANE [Concomitant]
     Active Substance: DEXRAZOXANE HYDROCHLORIDE
     Dosage: 500 MILLIGRAM
     Route: 042
     Dates: start: 20230329, end: 20230329
  14. DAUNORUBICIN [Concomitant]
     Active Substance: DAUNORUBICIN
     Dosage: 73 MILLIGRAM
     Dates: start: 20230329, end: 20230329
  15. LASIX [Concomitant]
     Active Substance: FUROSEMIDE
     Dosage: 20 MILLIGRAM
     Route: 042
     Dates: start: 20230329, end: 20230601
  16. ACYCLOVIR [Concomitant]
     Active Substance: ACYCLOVIR
     Dosage: 200 MILLIGRAM
     Route: 042
     Dates: start: 20230329, end: 20230414
  17. MAXIPIME [Concomitant]
     Active Substance: CEFEPIME HYDROCHLORIDE
     Dosage: 1.8-2 GRAM
     Route: 042
     Dates: start: 20230330, end: 20230508
  18. AMBROXOL [Concomitant]
     Active Substance: AMBROXOL
     Dosage: 15 MILLIGRAM
     Route: 042
     Dates: start: 20230331, end: 20230605
  19. LEVOFLOXACIN [Concomitant]
     Active Substance: LEVOFLOXACIN
     Dosage: 370 MILLIGRAM
     Route: 042
     Dates: start: 20230331, end: 20230604
  20. PEG/L-ASPARAGINASE [Concomitant]
     Active Substance: PEGASPARGASE
     Dosage: 3150 UNK
     Dates: start: 20230331, end: 20230417
  21. SYNATURA [Concomitant]
     Dosage: 15 MILLILITER
     Route: 048
     Dates: start: 20230331, end: 20230430
  22. FENTANYL [Concomitant]
     Active Substance: FENTANYL\FENTANYL CITRATE
     Dosage: 1500 MICROGRAM
     Route: 042
     Dates: start: 20230401, end: 20230605
  23. METRONIDAZOLE [Concomitant]
     Active Substance: METRONIDAZOLE
     Dosage: 500 MILLIGRAM
     Route: 042
     Dates: start: 20230403, end: 20230508
  24. TEICOCIN [Concomitant]
     Dosage: 350 MILLIGRAM
     Route: 042
     Dates: start: 20230405, end: 20230509
  25. ALBUMIN HUMAN [Concomitant]
     Active Substance: ALBUMIN HUMAN
     Dosage: 100 MILLILITER
     Route: 042
     Dates: start: 20230409, end: 20230603
  26. HYDROCORTISONE SODIUM SUCCINATE [Concomitant]
     Active Substance: HYDROCORTISONE SODIUM SUCCINATE
     Dosage: 100 MILLIGRAM
     Route: 042
     Dates: start: 20230327, end: 20230605
  27. KETAMINE [Concomitant]
     Active Substance: KETAMINE
     Dosage: 30 MILLIGRAM
     Route: 042
     Dates: start: 20230327, end: 20230404
  28. MIDAZOLAM [Concomitant]
     Active Substance: MIDAZOLAM
     Dosage: 3.5 MILLIGRAM
     Route: 042
     Dates: start: 20230327, end: 20230404
  29. ALOXI [Concomitant]
     Active Substance: PALONOSETRON HYDROCHLORIDE
     Dosage: 0.75 MILLIGRAM
     Route: 042
     Dates: start: 20230328, end: 20230404
  30. DEXAMETHASONE [Concomitant]
     Active Substance: DEXAMETHASONE
     Dosage: 7.5 MILLIGRAM
     Dates: start: 20230328, end: 20230413
  31. EMEND [Concomitant]
     Active Substance: APREPITANT
     Dosage: 80-115 MILLIGRAM
     Dates: start: 20230328, end: 20230330
  32. METHOTREXATE [Concomitant]
     Active Substance: METHOTREXATE
     Dosage: 15 MILLIGRAM
     Dates: start: 20230328, end: 20230404
  33. VINCRISTINE [Concomitant]
     Active Substance: VINCRISTINE
     Dosage: 1.9 MILLIGRAM
     Dates: start: 20230328, end: 20230418
  34. NORVASC [Concomitant]
     Active Substance: AMLODIPINE BESYLATE
     Dosage: 2.5-5 MILLIGRAM
     Route: 048
     Dates: start: 20230330, end: 20230528
  35. NICARDIPINE HYDROCHLORIDE [Concomitant]
     Active Substance: NICARDIPINE HYDROCHLORIDE
     Dosage: 0.5-1 MILLIGRAM
     Route: 042
     Dates: start: 20230330, end: 20230604
  36. METHYLPREDNISOLONE [Concomitant]
     Active Substance: METHYLPREDNISOLONE
     Dosage: 15 MILLIGRAM
     Dates: start: 20230328, end: 20230328
  37. NEXIUM [Concomitant]
     Active Substance: ESOMEPRAZOLE MAGNESIUM
     Dosage: 20 MILLIGRAM
     Route: 042
     Dates: start: 20230430, end: 20230606
  38. PRIMACOR [Concomitant]
     Active Substance: MILRINONE LACTATE
     Dosage: 40 MILLIGRAM
     Route: 042
     Dates: start: 20230503, end: 20230525
  39. Dulackhan easy [Concomitant]
     Dosage: 15 MILLILITER
     Route: 048
     Dates: start: 20230505, end: 20230519
  40. NALOXONE [Concomitant]
     Active Substance: NALOXONE
     Dosage: 2 MILLIGRAM
     Route: 042
     Dates: start: 20230505, end: 20230605
  41. MELATOL [Concomitant]
     Dosage: 2 MILLIGRAM
     Route: 048
     Dates: start: 20230517, end: 20230528
  42. QUETIAPINE [Concomitant]
     Active Substance: QUETIAPINE
     Dosage: 12.5 MILLIGRAM
     Route: 048
     Dates: start: 20230522, end: 20230525
  43. CARVEDILOL [Concomitant]
     Active Substance: CARVEDILOL
     Dosage: 1 UNK/ 9.37 MILLIGRAM
     Route: 048
     Dates: start: 20230525, end: 20230530
  44. TAZOPERAN [Concomitant]
     Dosage: 2.8 GRAM
     Route: 042
     Dates: start: 20230528, end: 20230605
  45. GAVIR [Concomitant]
     Dosage: 158 MILLIGRAM
     Route: 042
     Dates: start: 20230601, end: 20230605
  46. DEXTROSE [Concomitant]
     Active Substance: DEXTROSE\DEXTROSE MONOHYDRATE
     Dosage: 1000 MILLILITER
     Route: 042
     Dates: start: 20230328, end: 20230412

REACTIONS (2)
  - Pneumonitis [Fatal]
  - Pneumonitis [Recovered/Resolved]

NARRATIVE: CASE EVENT DATE: 20230413
